FAERS Safety Report 18722037 (Version 2)
Quarter: 2021Q1

REPORT INFORMATION
  Report Type: Spontaneous
  Country: IT (occurrence: IT)
  Receive Date: 20210111
  Receipt Date: 20210119
  Transmission Date: 20210419
  Serious: Yes (Death, Life-Threatening, Hospitalization, Other)
  Sender: FDA-Public Use
  Company Number: IT-AUROBINDO-AUR-APL-2021-000459

PATIENT
  Sex: Female

DRUGS (2)
  1. AMIODARONE [Suspect]
     Active Substance: AMIODARONE
     Indication: ARRHYTHMIA
     Dosage: UNK
     Route: 065
  2. AMIODARONE [Suspect]
     Active Substance: AMIODARONE
     Indication: CARDIAC FAILURE ACUTE

REACTIONS (8)
  - Acute respiratory failure [Fatal]
  - Urethritis [Unknown]
  - Septic shock [Fatal]
  - Escherichia infection [Fatal]
  - Stomatitis [Unknown]
  - Pneumonia [Unknown]
  - Toxic epidermal necrolysis [Fatal]
  - Conjunctival hyperaemia [Unknown]
